FAERS Safety Report 8205670-8 (Version None)
Quarter: 2012Q1

REPORT INFORMATION
  Report Type: 
  Country: None (occurrence: None)
  Receive Date: 20120313
  Receipt Date: 20120305
  Transmission Date: 20120608
  Serious: Yes (Hospitalization)
  Sender: FDA-Public Use
  Company Number: BE-VERTEX PHARMACEUTICALS INC.-AE-2011-001294

PATIENT
  Sex: Female
  Weight: 69 kg

DRUGS (9)
  1. COPEGUS [Suspect]
     Indication: HEPATITIS C
     Route: 048
     Dates: start: 20110518, end: 20110717
  2. ACETAMINOPHEN [Concomitant]
     Dates: start: 20110806
  3. XYZAL [Concomitant]
     Indication: RASH
     Dates: start: 20110804
  4. VX-950 [Suspect]
     Indication: HEPATITIS C
     Route: 048
     Dates: start: 20110518, end: 20110809
  5. COPEGUS [Suspect]
     Route: 048
     Dates: start: 20110811, end: 20110827
  6. PEGASYS [Suspect]
     Indication: HEPATITIS C
     Route: 058
     Dates: start: 20110518, end: 20110717
  7. PEGASYS [Suspect]
     Route: 058
     Dates: start: 20110811, end: 20110827
  8. PEGASYS [Suspect]
     Route: 058
     Dates: start: 20110718, end: 20110810
  9. COPEGUS [Suspect]
     Route: 048
     Dates: start: 20110804, end: 20110810

REACTIONS (1)
  - RASH [None]
